FAERS Safety Report 9186290 (Version 1)
Quarter: 2013Q1

REPORT INFORMATION
  Report Type: Spontaneous
  Country: SE (occurrence: SE)
  Receive Date: 20130325
  Receipt Date: 20130325
  Transmission Date: 20140127
  Serious: Yes (Hospitalization)
  Sender: FDA-Public Use
  Company Number: SE-GLAXOSMITHKLINE-B0876982A

PATIENT
  Age: 22 Year
  Sex: Male

DRUGS (6)
  1. EKVACILLIN [Suspect]
     Indication: PRODUCT USED FOR UNKNOWN INDICATION
     Dosage: 12G PER DAY
     Route: 065
     Dates: start: 20121221, end: 20130110
  2. ZINACEF [Suspect]
     Indication: PRODUCT USED FOR UNKNOWN INDICATION
     Route: 065
     Dates: start: 20130110, end: 20130128
  3. OMEPRAZOL [Concomitant]
     Route: 065
  4. ALVEDON [Concomitant]
     Route: 065
  5. STESOLID [Concomitant]
     Route: 065
  6. GENTAMYCIN [Concomitant]
     Route: 065

REACTIONS (1)
  - Agranulocytosis [Recovered/Resolved]
